FAERS Safety Report 22982258 (Version 2)
Quarter: 2023Q4

REPORT INFORMATION
  Report Type: Spontaneous
  Country: US (occurrence: US)
  Receive Date: 20230926
  Receipt Date: 20231101
  Transmission Date: 20240109
  Serious: No
  Sender: FDA-Public Use
  Company Number: US-BIOGEN-2023BI01225584

PATIENT
  Sex: Female

DRUGS (1)
  1. TYSABRI [Suspect]
     Active Substance: NATALIZUMAB
     Indication: Multiple sclerosis
     Route: 050
     Dates: start: 20221013, end: 20230731

REACTIONS (5)
  - Therapeutic product effect decreased [Unknown]
  - Hypoaesthesia [Unknown]
  - Paraesthesia [Unknown]
  - Brain fog [Unknown]
  - Constipation [Unknown]
